FAERS Safety Report 10051583 (Version 1)
Quarter: 2014Q2

REPORT INFORMATION
  Report Type: Spontaneous
  Country: FI (occurrence: FI)
  Receive Date: 20140401
  Receipt Date: 20140401
  Transmission Date: 20141212
  Serious: Yes (Hospitalization)
  Sender: FDA-Public Use
  Company Number: FI-ACTAVIS-2014-05866

PATIENT
  Age: 67 Year
  Sex: Male
  Weight: 71 kg

DRUGS (7)
  1. DOCETAXEL ACTAVIS [Suspect]
     Indication: NON-SMALL CELL LUNG CANCER
     Dosage: EVERY 3 WEEKS
     Route: 042
     Dates: start: 20130122
  2. ERLOTINIB [Concomitant]
     Indication: NON-SMALL CELL LUNG CANCER
     Dosage: 150 MG, DAILY
     Route: 048
     Dates: start: 20121017, end: 20130109
  3. OXIKLORIN [Concomitant]
     Indication: RHEUMATOID ARTHRITIS
     Dosage: 300 MG, DAILY 6 DAYS PER WEEK
     Route: 048
     Dates: start: 2003
  4. ATACAND [Concomitant]
     Indication: BLOOD PRESSURE
     Dosage: UNK, UNKNOWN
     Route: 048
     Dates: start: 20121031, end: 20130128
  5. CODESAN COMP [Concomitant]
     Indication: COUGH
     Dosage: UNK, UNKNOWN
     Route: 048
     Dates: start: 20121017, end: 20130128
  6. PREDNISOLON                        /00016201/ [Concomitant]
     Indication: RHEUMATOID ARTHRITIS
     Dosage: UNK, UNKNOWN
     Route: 048
     Dates: start: 2003
  7. SPIRIVA [Concomitant]
     Indication: CHRONIC OBSTRUCTIVE PULMONARY DISEASE
     Dosage: UNK, UNKNOWN
     Route: 055

REACTIONS (1)
  - Pneumonia [Recovered/Resolved]
